FAERS Safety Report 7617560-X (Version None)
Quarter: 2011Q3

REPORT INFORMATION
  Report Type: 
  Country: None (occurrence: None)
  Receive Date: 20110718
  Receipt Date: 20110706
  Transmission Date: 20111222
  Serious: Yes (Hospitalization)
  Sender: FDA-Public Use
  Company Number: JP-JNJFOC-20110703826

PATIENT
  Age: 75 Year
  Sex: Male

DRUGS (4)
  1. REMICADE [Suspect]
     Indication: BEHCET'S SYNDROME
     Route: 042
  2. IMURAN [Suspect]
     Indication: BEHCET'S SYNDROME
  3. CORTICOSTEROID [Suspect]
     Indication: BEHCET'S SYNDROME
  4. 5-AMINOSALICYLIC ACID [Concomitant]
     Indication: BEHCET'S SYNDROME

REACTIONS (2)
  - MENINGITIS CRYPTOCOCCAL [None]
  - PNEUMONIA CYTOMEGALOVIRAL [None]
